FAERS Safety Report 10979110 (Version 1)
Quarter: 2015Q1

REPORT INFORMATION
  Report Type: Spontaneous
  Country: US (occurrence: None)
  Receive Date: 20150227
  Receipt Date: 20150227
  Transmission Date: 20150721
  Serious: Yes (Life-Threatening, Other)
  Sender: FDA-Public Use
  Company Number: LMI-2014-00503

PATIENT
  Age: 67 Year
  Sex: Male
  Weight: 89 kg

DRUGS (7)
  1. OMEGA 3 [Concomitant]
     Active Substance: OMEGA-3 FATTY ACIDS
  2. DEFINITY [Suspect]
     Active Substance: PERFLUTREN
     Indication: ECHOCARDIOGRAM
     Dosage: 2.0ML DEFINITY DILUTED IN 8.0ML UNSPECIFIED DILUENT (4ML, 1 IN 1 D)
     Route: 040
     Dates: start: 20141110, end: 20141110
  3. VITAMIN D (VITAMIN D NOS) [Concomitant]
  4. SPIRIVA (TIOTROPIUM BROMIDE) [Concomitant]
  5. LIPITOR [Concomitant]
     Active Substance: ATORVASTATIN CALCIUM
  6. ASPIRIN (ACETYLSALICYLIC ACID) [Concomitant]
     Active Substance: ASPIRIN
  7. ALBUTEROL. [Concomitant]
     Active Substance: ALBUTEROL

REACTIONS (3)
  - Cardiac arrest [None]
  - Bundle branch block right [None]
  - Respiratory arrest [None]

NARRATIVE: CASE EVENT DATE: 20141110
